FAERS Safety Report 6355739-8 (Version None)
Quarter: 2009Q3

REPORT INFORMATION
  Report Type: 
  Country: None (occurrence: None)
  Receive Date: 20090915
  Receipt Date: 20070515
  Transmission Date: 20100115
  Serious: Yes (Hospitalization, Other)
  Sender: FDA-Public Use
  Company Number: US-ASTRAZENECA-2006UW21906

PATIENT
  Age: 39 Year
  Sex: Female
  Weight: 131.5 kg

DRUGS (41)
  1. SEROQUEL [Suspect]
     Indication: DEPRESSION
     Dosage: 100-200 MG
     Route: 048
     Dates: start: 20051001, end: 20051201
  2. SEROQUEL [Suspect]
     Indication: MENTAL DISORDER
     Dosage: 100-200 MG
     Route: 048
     Dates: start: 20051001, end: 20051201
  3. SEROQUEL [Suspect]
     Route: 048
     Dates: start: 20051014, end: 20051101
  4. SEROQUEL [Suspect]
     Route: 048
     Dates: start: 20051014, end: 20051101
  5. SEROQUEL [Suspect]
     Dosage: 100 MG-200 MG
     Route: 048
     Dates: start: 20060104
  6. SEROQUEL [Suspect]
     Dosage: 100 MG-200 MG
     Route: 048
     Dates: start: 20060104
  7. ABILIFY [Suspect]
     Dates: start: 20040101, end: 20050101
  8. ABILIFY [Suspect]
     Route: 048
     Dates: start: 20050711
  9. GEODON [Suspect]
     Dates: start: 20050101
  10. GEODON [Suspect]
     Dosage: 80 MG
     Dates: start: 20050920
  11. RISPERDAL [Suspect]
     Indication: DEPRESSION
     Dates: start: 20040301, end: 20050801
  12. RISPERDAL [Suspect]
     Route: 048
     Dates: start: 20040307
  13. THORAZINE [Suspect]
     Dates: start: 19930101, end: 19940101
  14. THORAZINE [Suspect]
     Dates: start: 20040310
  15. PERPHENAZINE [Suspect]
     Dates: start: 20040101, end: 20050101
  16. LEXAPRO [Suspect]
     Indication: DEPRESSION
     Dates: start: 20050711
  17. TRAZODONE HCL [Suspect]
     Indication: SLEEP DISORDER
     Dosage: 100 MG-150 MG
     Route: 048
     Dates: start: 20050711, end: 20051101
  18. TRAZODONE HCL [Suspect]
     Indication: DEPRESSION
     Dosage: 100 MG-150 MG
     Route: 048
     Dates: start: 20050711, end: 20051101
  19. TRAZODONE HCL [Suspect]
     Dosage: 100 MG-150 MG
     Route: 048
     Dates: start: 20060104
  20. TRAZODONE HCL [Suspect]
     Dosage: 100 MG-150 MG
     Route: 048
     Dates: start: 20060104
  21. EFFEXOR [Suspect]
     Route: 048
     Dates: start: 20050920
  22. PAXIL [Suspect]
     Dates: start: 20040310
  23. ATIVAN [Suspect]
  24. BUSPAR [Suspect]
     Dates: start: 19991223
  25. ETRAFAN [Suspect]
  26. REMERON [Suspect]
     Indication: SLEEP DISORDER
     Route: 048
     Dates: start: 20040307
  27. REMERON [Suspect]
     Indication: DEPRESSION
     Route: 048
     Dates: start: 20040307
  28. LAMICTAL [Concomitant]
     Dosage: 25 MG-200 MG
     Route: 048
     Dates: start: 20060323
  29. LISINOPRIL [Concomitant]
     Dosage: 10 MG-20 MG
     Dates: start: 20040307
  30. DETROL LA [Concomitant]
     Dates: start: 20050706
  31. ACETAMINOPHEN-COD [Concomitant]
     Dosage: 300-30 MG, 1-2 TABLETS EVERY 4 TO 6 HOURS AS NEEDED
     Dates: start: 20050712
  32. METRONIDAZOLE [Concomitant]
     Dates: start: 20050712
  33. NABUMETONE [Concomitant]
     Dates: start: 19991223
  34. PROZAC [Concomitant]
     Dates: start: 20040310
  35. WELLBUTRIN [Concomitant]
     Dates: start: 20040310
  36. ZOLOFT [Concomitant]
     Dates: start: 20040310
  37. XANAX [Concomitant]
     Indication: NERVOUS SYSTEM DISORDER
     Dates: start: 19960715
  38. GLUCOPHAGE [Concomitant]
     Dosage: 500 MG-2000 MG
     Route: 048
     Dates: start: 20060105
  39. AVANDARYL [Concomitant]
     Dosage: 4/2 MG
     Route: 048
     Dates: start: 20060515
  40. MOTRIN [Concomitant]
     Indication: ARTHRITIS
     Dates: start: 19960715
  41. ALBUTEROL [Concomitant]
     Dosage: 90 MCG INHALER
     Dates: start: 20060602

REACTIONS (8)
  - BLOOD CHOLESTEROL INCREASED [None]
  - BLOOD TRIGLYCERIDES INCREASED [None]
  - DIABETES MELLITUS [None]
  - DIABETIC NEPHROPATHY [None]
  - DIABETIC NEUROPATHY [None]
  - HYPERLIPIDAEMIA [None]
  - NEUROLEPTIC MALIGNANT SYNDROME [None]
  - OVARIAN CYST [None]
